FAERS Safety Report 16138664 (Version 4)
Quarter: 2019Q3

REPORT INFORMATION
  Report Type: Report from Study
  Country: US (occurrence: US)
  Receive Date: 20190401
  Receipt Date: 20190910
  Transmission Date: 20191004
  Serious: Yes (Hospitalization, Other)
  Sender: FDA-Public Use
  Company Number: US-ROCHE-2085683

PATIENT
  Age: 70 Year
  Sex: Female
  Weight: 59.47 kg

DRUGS (8)
  1. COPAXONE [Suspect]
     Active Substance: GLATIRAMER ACETATE
     Indication: PRODUCT USED FOR UNKNOWN INDICATION
     Route: 065
  2. OCREVUS [Suspect]
     Active Substance: OCRELIZUMAB
     Dosage: HALF DOSE
     Route: 042
     Dates: start: 2017
  3. OCREVUS [Suspect]
     Active Substance: OCRELIZUMAB
     Indication: PROGRESSIVE MULTIPLE SCLEROSIS
     Dosage: TWO STARTING DOSES
     Route: 042
     Dates: start: 2017, end: 201708
  4. VITAMIN B [Concomitant]
     Active Substance: VITAMIN B
  5. BACLOFEN. [Concomitant]
     Active Substance: BACLOFEN
  6. VITAMIN C [Concomitant]
     Active Substance: ASCORBIC ACID
  7. AMBIEN [Concomitant]
     Active Substance: ZOLPIDEM TARTRATE
     Dosage: ONGOING:?FOR SLEEP
     Route: 065
  8. OCREVUS [Suspect]
     Active Substance: OCRELIZUMAB
     Dosage: FULL DOSE
     Route: 042

REACTIONS (8)
  - Memory impairment [Not Recovered/Not Resolved]
  - Intervertebral disc protrusion [Unknown]
  - Lower limb fracture [Not Recovered/Not Resolved]
  - Femur fracture [Recovered/Resolved]
  - Drug ineffective [Unknown]
  - Urinary tract infection [Unknown]
  - Fall [Unknown]
  - Headache [Unknown]

NARRATIVE: CASE EVENT DATE: 2017
